FAERS Safety Report 4910010-3 (Version None)
Quarter: 2006Q1

REPORT INFORMATION
  Report Type: 
  Country: None (occurrence: None)
  Receive Date: 20060208
  Receipt Date: 20060126
  Transmission Date: 20060701
  Serious: Yes (Other)
  Sender: FDA-Public Use
  Company Number: 2006BH001443

PATIENT

DRUGS (3)
  1. LIDOCAINE HYDROCHLORIDE WITH DEXTROSE (LIDOCAINE HYDROCHLORIDE) [Suspect]
     Indication: CONVULSION NEONATAL
     Dosage: 2 MG/KG IV ; 6 MG/KG IV
     Route: 042
  2. MIDAZOLAM HCL [Concomitant]
  3. PHENOBARBITAL TAB [Concomitant]

REACTIONS (2)
  - BRADYCARDIA NEONATAL [None]
  - ELECTROCARDIOGRAM QRS COMPLEX PROLONGED [None]
